FAERS Safety Report 4601552-9 (Version None)
Quarter: 2005Q1

REPORT INFORMATION
  Report Type: 
  Country: None (occurrence: None)
  Receive Date: 20050131
  Receipt Date: 20041109
  Transmission Date: 20050727
  Serious: No
  Sender: FDA-Public Use
  Company Number: 200418701US

PATIENT
  Age: 41 Year
  Sex: Female

DRUGS (1)
  1. KETEK [Suspect]
     Indication: SINUSITIS
     Dosage: PO
     Route: 048
     Dates: start: 20041105, end: 20041105

REACTIONS (9)
  - BALANCE DISORDER [None]
  - COLOUR BLINDNESS [None]
  - DIARRHOEA [None]
  - DIPLOPIA [None]
  - NAUSEA [None]
  - PHOTOPSIA [None]
  - VISION BLURRED [None]
  - VISUAL BRIGHTNESS [None]
  - VISUAL DISTURBANCE [None]
